FAERS Safety Report 17258328 (Version 1)
Quarter: 2020Q1

REPORT INFORMATION
  Report Type: Spontaneous
  Country: US (occurrence: US)
  Receive Date: 20200110
  Receipt Date: 20200110
  Transmission Date: 20200409
  Serious: Yes (Other)
  Sender: FDA-Public Use
  Company Number: US-GLAXOSMITHKLINE-US2020GSK002633

PATIENT
  Age: 53 Year
  Sex: Female

DRUGS (1)
  1. ALBUTEROL. [Suspect]
     Active Substance: ALBUTEROL
     Indication: ASTHMA
     Dosage: UNK

REACTIONS (10)
  - Hypotension [Unknown]
  - Stress cardiomyopathy [Unknown]
  - Electrocardiogram ST segment elevation [Unknown]
  - Overdose [Unknown]
  - Dyspnoea [Unknown]
  - Drug ineffective [Unknown]
  - Troponin increased [Unknown]
  - Inappropriate schedule of product administration [Unknown]
  - Respiratory failure [Unknown]
  - Hyperhidrosis [Unknown]
